FAERS Safety Report 7909325-6 (Version None)
Quarter: 2011Q4

REPORT INFORMATION
  Report Type: 
  Country: None (occurrence: None)
  Receive Date: 20111111
  Receipt Date: 20111108
  Transmission Date: 20120403
  Serious: Yes (Hospitalization)
  Sender: FDA-Public Use
  Company Number: US-B.I. PHARMACEUTICALS,INC./RIDGEFIELD-2011-BP-25849BP

PATIENT
  Sex: Female

DRUGS (25)
  1. NOVOLOG [Concomitant]
     Indication: DIABETES MELLITUS
     Route: 058
  2. FLECAINIDE ACETATE [Concomitant]
     Dosage: 2.5 MG
     Route: 048
  3. PROAIR HFA [Concomitant]
     Route: 055
  4. PANTOPRAZOLE [Concomitant]
     Indication: GASTRIC ULCER
     Dosage: 40 MG
     Route: 048
  5. FUROSEMIDE [Concomitant]
     Dosage: 2.5 MG
     Route: 048
  6. DEPAKOTE [Concomitant]
     Indication: BIPOLAR DISORDER
     Route: 048
  7. WARFARIN SODIUM [Concomitant]
     Indication: ATRIAL FIBRILLATION
     Dosage: 3.5714 MG
     Route: 048
  8. WARFARIN SODIUM [Concomitant]
     Dosage: 0.7143 MG
     Route: 048
  9. METOPROLOL [Concomitant]
     Dosage: 2.5 MG
     Route: 048
  10. M.V.I. [Concomitant]
     Dosage: 2.5 MG
     Route: 048
  11. SPIRIVA [Suspect]
     Indication: CHRONIC OBSTRUCTIVE PULMONARY DISEASE
     Dosage: 18 MCG
     Route: 055
     Dates: start: 20090101
  12. GEDON [Concomitant]
     Indication: BIPOLAR DISORDER
     Dosage: 80 MG
     Route: 048
  13. ASPIRIN [Concomitant]
     Dosage: 2.5 MG
     Route: 048
  14. VITAMIN D [Concomitant]
     Indication: ROUTINE HEALTH MAINTENANCE
     Route: 048
  15. FLECAINIDE ACETATE [Concomitant]
     Indication: ATRIAL FIBRILLATION
     Dosage: 100 MG
     Route: 048
  16. VYTORIN [Concomitant]
     Indication: BLOOD CHOLESTEROL INCREASED
     Route: 048
     Dates: start: 20100101
  17. M.V.I. [Concomitant]
     Indication: ROUTINE HEALTH MAINTENANCE
     Route: 048
  18. SYMBICORT [Concomitant]
     Route: 055
  19. VYTORIN [Concomitant]
     Dosage: 2.5 MG
     Route: 048
  20. METOPROLOL [Concomitant]
     Dosage: 50 MG
     Route: 048
  21. LANTUS [Concomitant]
     Indication: DIABETES MELLITUS
     Route: 058
  22. PANTOPRAZOLE [Concomitant]
     Dosage: 2.5 MG
     Route: 048
  23. GEDON [Concomitant]
     Dosage: 2.5 MG
     Route: 048
  24. FUROSEMIDE [Concomitant]
     Indication: OEDEMA PERIPHERAL
     Dosage: 20 MG
     Route: 048
  25. ASPIRIN [Concomitant]
     Indication: ROUTINE HEALTH MAINTENANCE
     Dosage: 81 MG
     Route: 048

REACTIONS (3)
  - DRUG INEFFECTIVE [None]
  - PNEUMONIA [None]
  - PLEURAL EFFUSION [None]
